FAERS Safety Report 11443610 (Version 1)
Quarter: 2015Q3

REPORT INFORMATION
  Report Type: Spontaneous
  Country: CA (occurrence: CA)
  Receive Date: 20150901
  Receipt Date: 20150901
  Transmission Date: 20151125
  Serious: Yes (Disabling)
  Sender: FDA-Public Use
  Company Number: CA-TEVA-590280ACC

PATIENT
  Age: 42 Year
  Sex: Male
  Weight: 79.45 kg

DRUGS (2)
  1. TEVA-VENLAFAXINE XR [Suspect]
     Active Substance: VENLAFAXINE HYDROCHLORIDE
     Indication: DEPRESSION
     Dosage: 37.5 MILLIGRAM DAILY;
     Route: 065
  2. CITALOPRAM [Suspect]
     Active Substance: CITALOPRAM HYDROBROMIDE
     Indication: DEPRESSION
     Dosage: 20 MILLIGRAM DAILY;
     Route: 065

REACTIONS (6)
  - Skin plaque [Recovered/Resolved]
  - Acne [Recovered/Resolved]
  - Adverse drug reaction [Recovered/Resolved]
  - Blood creatinine increased [Recovered/Resolved]
  - Infection parasitic [Recovered/Resolved]
  - Pruritus [Recovered/Resolved]
